FAERS Safety Report 4674886-X (Version None)
Quarter: 2005Q2

REPORT INFORMATION
  Report Type: 
  Country: None (occurrence: None)
  Receive Date: 20050525
  Receipt Date: 20050516
  Transmission Date: 20051028
  Serious: Yes (Death)
  Sender: FDA-Public Use
  Company Number: GXKR2005GB01086

PATIENT
  Sex: Male

DRUGS (6)
  1. AMOXICILLIN [Suspect]
     Dosage: INTRAVENOUS
     Route: 042
  2. CLARITHROMYCIN [Suspect]
  3. SALBUTAMOL (NGX) (SALBUTAMOL) [Suspect]
  4. ATROVENT [Suspect]
  5. CO-DANTHRAMER (DANTRON, POLOXAMER) [Suspect]
  6. ACETAMINOPHEN [Suspect]

REACTIONS (2)
  - BRONCHIAL CARCINOMA [None]
  - PNEUMONIA [None]
